FAERS Safety Report 4980887-4 (Version None)
Quarter: 2006Q2

REPORT INFORMATION
  Report Type: 
  Country: None (occurrence: None)
  Receive Date: 20060418
  Receipt Date: 20060411
  Transmission Date: 20061013
  Serious: Yes (Other)
  Sender: FDA-Public Use
  Company Number: 2006041401

PATIENT
  Age: 74 Year
  Sex: Male
  Weight: 83.9154 kg

DRUGS (9)
  1. LIPITOR [Suspect]
     Indication: BLOOD CHOLESTEROL
     Dosage: 10 MG (10 MG, 1 IN 1 D), ORAL
     Route: 048
     Dates: start: 20000101
  2. ATENOLOL [Concomitant]
  3. TERAZOSIN (TERAZOSIN) [Concomitant]
  4. FUROSEMIDE [Concomitant]
  5. MULTIVITAMIN [Concomitant]
  6. VITAMIN C (VITAMIN C) [Concomitant]
  7. VITAMIN E [Concomitant]
  8. VITAMIN B12 [Concomitant]
  9. ASPIRIN [Concomitant]

REACTIONS (2)
  - MYALGIA [None]
  - VASCULAR BYPASS GRAFT [None]
